FAERS Safety Report 23822367 (Version 1)
Quarter: 2024Q2

REPORT INFORMATION
  Report Type: Spontaneous
  Country: US (occurrence: US)
  Receive Date: 20240506
  Receipt Date: 20240506
  Transmission Date: 20240716
  Serious: No
  Sender: FDA-Public Use
  Company Number: US-BAUSCH-BL-2024-006802

PATIENT
  Age: 51 Year
  Sex: Male

DRUGS (1)
  1. BENZOYL PEROXIDE\ERYTHROMYCIN [Suspect]
     Active Substance: BENZOYL PEROXIDE\ERYTHROMYCIN
     Indication: Acne
     Dosage: BID, APPLIED TWICE DAILY FOR ACNE
     Route: 061

REACTIONS (3)
  - Product physical consistency issue [Unknown]
  - Product quality issue [Unknown]
  - Therapeutic product effect delayed [Unknown]
